FAERS Safety Report 11614982 (Version 2)
Quarter: 2015Q4

REPORT INFORMATION
  Report Type: Spontaneous
  Country: FR (occurrence: FR)
  Receive Date: 20151009
  Receipt Date: 20151106
  Transmission Date: 20160304
  Serious: Yes (Other)
  Sender: FDA-Public Use
  Company Number: FR-AUROBINDO-AUR-APL-2015-08892

PATIENT
  Age: 25 Year
  Sex: Male

DRUGS (3)
  1. RISPERIDONE 4MG [Suspect]
     Active Substance: RISPERIDONE
     Indication: PSYCHOTIC DISORDER
     Dosage: 4 MG, DAILY FRO 4 DAYS
     Route: 065
  2. LEVOMEPROMAZINE [Suspect]
     Active Substance: LEVOMEPROMAZINE
     Indication: PSYCHOTIC DISORDER
     Dosage: 300 MG, DAILY
     Route: 065
  3. LOXAPINE. [Suspect]
     Active Substance: LOXAPINE
     Indication: PSYCHOTIC DISORDER
     Dosage: 400 MG, DAILY
     Route: 065

REACTIONS (10)
  - Psychotic disorder [Unknown]
  - C-reactive protein increased [Unknown]
  - Eye oedema [Unknown]
  - Muscle contracture [Unknown]
  - Deep vein thrombosis [Recovering/Resolving]
  - Rhabdomyolysis [Recovered/Resolved]
  - Acute kidney injury [Unknown]
  - Blood creatine phosphokinase increased [Recovered/Resolved]
  - Condition aggravated [Unknown]
  - Proteinuria [Recovering/Resolving]
